FAERS Safety Report 6057564-4 (Version None)
Quarter: 2009Q1

REPORT INFORMATION
  Report Type: 
  Country: None (occurrence: None)
  Receive Date: 20090129
  Receipt Date: 20090126
  Transmission Date: 20090719
  Serious: Yes (Other)
  Sender: FDA-Public Use
  Company Number: US-ELI_LILLY_AND_COMPANY-US200812003763

PATIENT
  Age: 38 Year
  Sex: Female

DRUGS (1)
  1. XIGRIS [Suspect]
     Indication: SEPSIS
     Dosage: UNK, OTHER; 96 HOURS
     Route: 042
     Dates: start: 20081214, end: 20081201

REACTIONS (1)
  - PLATELET COUNT DECREASED [None]
